FAERS Safety Report 17169072 (Version 1)
Quarter: 2019Q4

REPORT INFORMATION
  Report Type: Spontaneous
  Country: US (occurrence: US)
  Receive Date: 20191217
  Receipt Date: 20191217
  Transmission Date: 20200122
  Serious: Yes (Death)
  Sender: FDA-Public Use
  Company Number: None

PATIENT
  Age: 72 Year
  Sex: Male
  Weight: 76.95 kg

DRUGS (20)
  1. CAPECITABINE. [Suspect]
     Active Substance: CAPECITABINE
     Indication: PANCREATIC CARCINOMA
     Dosage: ?          OTHER FREQUENCY:BID X 14 DAYS/21;?
     Route: 048
     Dates: start: 20191127
  2. LORAZEPAM. [Concomitant]
     Active Substance: LORAZEPAM
  3. TRAIAMCINOLONE [Concomitant]
  4. AMLODIPINE BESYLATE. [Concomitant]
     Active Substance: AMLODIPINE BESYLATE
  5. ESOPEPRAZOLE [Concomitant]
  6. EZETIMIBE. [Concomitant]
     Active Substance: EZETIMIBE
  7. FENTANYL. [Concomitant]
     Active Substance: FENTANYL
  8. PAROXETINE. [Concomitant]
     Active Substance: PAROXETINE
  9. VENTOLIN [Concomitant]
     Active Substance: ALBUTEROL SULFATE
  10. XARELTO [Concomitant]
     Active Substance: RIVAROXABAN
  11. CAPECITABINE. [Suspect]
     Active Substance: CAPECITABINE
     Indication: PANCREATIC CARCINOMA
     Dosage: ?          OTHER FREQUENCY:BID X 14/21;?
     Route: 048
     Dates: start: 20191127
  12. METFORMIN HCL [Concomitant]
     Active Substance: METFORMIN HYDROCHLORIDE
  13. PROMETHAZINE [Concomitant]
     Active Substance: PROMETHAZINE HYDROCHLORIDE
  14. REGLAN [Concomitant]
     Active Substance: METOCLOPRAMIDE HYDROCHLORIDE
  15. TAMSULOSIN [Concomitant]
     Active Substance: TAMSULOSIN
  16. LASIX [Concomitant]
     Active Substance: FUROSEMIDE
  17. SOLIFENACIN [Concomitant]
     Active Substance: SOLIFENACIN
  18. TRESIBA [Concomitant]
     Active Substance: INSULIN DEGLUDEC
  19. BYDUREON [Concomitant]
     Active Substance: EXENATIDE
  20. METOPROLOL. [Concomitant]
     Active Substance: METOPROLOL

REACTIONS (1)
  - Death [None]

NARRATIVE: CASE EVENT DATE: 20191205
